FAERS Safety Report 18989681 (Version 1)
Quarter: 2021Q1

REPORT INFORMATION
  Report Type: Spontaneous
  Country: CN (occurrence: CN)
  Receive Date: 20210310
  Receipt Date: 20210310
  Transmission Date: 20210420
  Serious: Yes (Hospitalization, Other)
  Sender: FDA-Public Use
  Company Number: CN-SUN PHARMACEUTICAL INDUSTRIES LTD-2021R1-283531

PATIENT
  Age: 68 Year
  Sex: Male

DRUGS (3)
  1. IRBESARTAN/HCTZ RBX [Suspect]
     Active Substance: HYDROCHLOROTHIAZIDE\IRBESARTAN
     Indication: HYPERTENSION
     Dosage: 150/12.5MG PER DAY
     Route: 065
  2. SIMVASTATIN. [Suspect]
     Active Substance: SIMVASTATIN
     Indication: HYPERLIPIDAEMIA
     Dosage: 20 MG PER NIGHT
     Route: 065
  3. GLYCYRRHIZA [Suspect]
     Active Substance: LICORICE
     Indication: NASOPHARYNGITIS
     Dosage: FOUR PILLS DAILY
     Route: 048

REACTIONS (2)
  - Hypokalaemia [Recovered/Resolved]
  - Rhabdomyolysis [Recovered/Resolved]
